FAERS Safety Report 7133765-9 (Version None)
Quarter: 2010Q4

REPORT INFORMATION
  Report Type: 
  Country: None (occurrence: None)
  Receive Date: 20101203
  Receipt Date: 20101123
  Transmission Date: 20110411
  Serious: Yes (Hospitalization)
  Sender: FDA-Public Use
  Company Number: US-BIOGENIDEC-2010BI041644

PATIENT
  Age: 74 Year
  Sex: Female
  Weight: 64 kg

DRUGS (6)
  1. AVONEX [Suspect]
     Indication: MULTIPLE SCLEROSIS
     Route: 030
     Dates: start: 20100927
  2. SULFAMETHOXAZOLE [Concomitant]
     Indication: BLADDER DISORDER
  3. FLUOXETINE [Concomitant]
     Indication: ANTIDEPRESSANT THERAPY
  4. SIMVASTATIN [Concomitant]
     Indication: PROPHYLAXIS
     Route: 048
  5. HYDROCODONE [Concomitant]
     Indication: DISLOCATION OF VERTEBRA
     Route: 048
  6. MIRALAX [Concomitant]
     Indication: CONSTIPATION

REACTIONS (6)
  - DYSPNOEA [None]
  - GAIT DISTURBANCE [None]
  - GENERAL SYMPTOM [None]
  - HEADACHE [None]
  - ORTHOSTATIC HYPOTENSION [None]
  - ULCER HAEMORRHAGE [None]
